FAERS Safety Report 5782344-4 (Version None)
Quarter: 2008Q2

REPORT INFORMATION
  Report Type: 
  Country: None (occurrence: None)
  Receive Date: 20080623
  Receipt Date: 20080619
  Transmission Date: 20081010
  Serious: Yes (Death)
  Sender: FDA-Public Use
  Company Number: US-BOEHRINGER INGELHEIM GMBH, GERMANY-2008-BP-09581RO

PATIENT
  Sex: Male

DRUGS (7)
  1. METHADONE HCL [Suspect]
  2. DIAZEPAM [Suspect]
     Indication: ANXIETY
     Route: 048
     Dates: start: 20080124, end: 20080214
  3. OPANA ER [Suspect]
     Indication: PAIN
     Route: 048
     Dates: start: 20080205, end: 20080214
  4. NORCO [Suspect]
     Indication: PAIN
     Route: 048
     Dates: start: 20080131, end: 20080214
  5. AMITRIPTYLINE HCL [Suspect]
     Indication: DEPRESSION
     Route: 048
     Dates: start: 20080128, end: 20080214
  6. NORDIAZEPAM [Suspect]
  7. NORTRIPTYLINE HCL [Suspect]

REACTIONS (1)
  - DRUG TOXICITY [None]
